FAERS Safety Report 5200446-8 (Version None)
Quarter: 2006Q4

REPORT INFORMATION
  Report Type: 
  Country: None (occurrence: None)
  Receive Date: 20061016
  Receipt Date: 20060818
  Transmission Date: 20070319
  Serious: No
  Sender: FDA-Public Use
  Company Number: 2006SP003062

PATIENT
  Sex: Female

DRUGS (1)
  1. LUNESTA [Suspect]
     Dosage: 1 MG; ORAL
     Dates: start: 20060601, end: 20060701

REACTIONS (1)
  - VAGINAL HAEMORRHAGE [None]
